FAERS Safety Report 13272850 (Version 1)
Quarter: 2017Q1

REPORT INFORMATION
  Report Type: Spontaneous
  Country: US (occurrence: US)
  Receive Date: 20170224
  Receipt Date: 20170224
  Transmission Date: 20170428
  Serious: Yes (Other)
  Sender: FDA-Public Use
  Company Number: None

PATIENT
  Age: 57 Year
  Sex: Female
  Weight: 90 kg

DRUGS (8)
  1. PANTOPROZOLE [Concomitant]
  2. CLARITIN [Concomitant]
     Active Substance: LORATADINE
  3. NEXXIUM [Concomitant]
  4. TYLENOL [Concomitant]
     Active Substance: ACETAMINOPHEN
  5. FLOVENT DISKUS [Concomitant]
     Active Substance: FLUTICASONE PROPIONATE
  6. TOPIRAMATE. [Suspect]
     Active Substance: TOPIRAMATE
     Indication: MIGRAINE
     Dosage: ?          QUANTITY:1 TABLET(S);?
     Route: 048
     Dates: start: 20170201, end: 20170214
  7. SYNTHROID [Concomitant]
     Active Substance: LEVOTHYROXINE SODIUM
  8. TOPIRAMATE. [Suspect]
     Active Substance: TOPIRAMATE
     Indication: EPILEPSY
     Dosage: ?          QUANTITY:1 TABLET(S);?
     Route: 048
     Dates: start: 20170201, end: 20170214

REACTIONS (9)
  - Abdominal discomfort [None]
  - Product formulation issue [None]
  - Diarrhoea [None]
  - Nausea [None]
  - Tremor [None]
  - Panic attack [None]
  - Drug withdrawal syndrome [None]
  - Product quality issue [None]
  - Photophobia [None]

NARRATIVE: CASE EVENT DATE: 20170201
